FAERS Safety Report 17295291 (Version 2)
Quarter: 2022Q4

REPORT INFORMATION
  Report Type: Spontaneous
  Country: US (occurrence: US)
  Receive Date: 20200121
  Receipt Date: 20221202
  Transmission Date: 20230113
  Serious: Yes (Hospitalization, Other)
  Sender: FDA-Public Use
  Company Number: US-PFIZER INC-2020025807

PATIENT
  Age: 84 Year
  Sex: Male
  Weight: 64.41 kg

DRUGS (1)
  1. VYNDAMAX [Suspect]
     Active Substance: TAFAMIDIS
     Indication: Cardiac disorder
     Dosage: 61 MG, ONCE A DAY
     Route: 048

REACTIONS (5)
  - Cardiac failure [Unknown]
  - Weight decreased [Not Recovered/Not Resolved]
  - Renal disorder [Unknown]
  - Peripheral swelling [Unknown]
  - Off label use [Unknown]
